FAERS Safety Report 12325958 (Version 3)
Quarter: 2018Q3

REPORT INFORMATION
  Report Type: Spontaneous
  Country: US (occurrence: US)
  Receive Date: 20160503
  Receipt Date: 20180820
  Transmission Date: 20181010
  Serious: Yes (Death)
  Sender: FDA-Public Use
  Company Number: PHEH2016US010834

PATIENT
  Age: 83 Year
  Sex: Male

DRUGS (2)
  1. ZOMETA [Suspect]
     Active Substance: ZOLEDRONIC ACID
     Indication: PRODUCT USED FOR UNKNOWN INDICATION
     Dosage: Q3MO
     Route: 065
  2. XTANDI [Suspect]
     Active Substance: ENZALUTAMIDE
     Indication: PROSTATE CANCER
     Dosage: 160 MG, QD
     Route: 048
     Dates: start: 20030521

REACTIONS (4)
  - Urinary bladder haemorrhage [Fatal]
  - Hot flush [Not Recovered/Not Resolved]
  - Abdominal discomfort [Recovered/Resolved]
  - Bladder cancer [Fatal]

NARRATIVE: CASE EVENT DATE: 20151115
